FAERS Safety Report 7951907-X (Version None)
Quarter: 2011Q4

REPORT INFORMATION
  Report Type: 
  Country: None (occurrence: None)
  Receive Date: 20111130
  Receipt Date: 20111130
  Transmission Date: 20120403
  Serious: Yes (Other)
  Sender: FDA-Public Use
  Company Number: None

PATIENT
  Sex: Male

DRUGS (1)
  1. LOSARTAN POTASSIUM [Suspect]
     Indication: HYPERTENSION
     Dosage: 100G TWICE ORAL
     Route: 048
     Dates: start: 20110125, end: 20111101

REACTIONS (3)
  - CHEST PAIN [None]
  - NAUSEA [None]
  - MALAISE [None]
